FAERS Safety Report 7227694-X (Version None)
Quarter: 2011Q1

REPORT INFORMATION
  Report Type: 
  Country: None (occurrence: None)
  Receive Date: 20110114
  Receipt Date: 20110111
  Transmission Date: 20110831
  Serious: No
  Sender: FDA-Public Use
  Company Number: US-PFIZER INC-2011007878

PATIENT
  Sex: Male

DRUGS (2)
  1. LIPITOR [Concomitant]
     Indication: BLOOD CHOLESTEROL INCREASED
     Dosage: 20 MG, 1X/DAY
     Route: 048
  2. VIAGRA [Suspect]
     Indication: PROSTATIC OPERATION
     Dosage: 50 MG, UNK
     Route: 048
     Dates: start: 20100815

REACTIONS (1)
  - DRUG INEFFECTIVE [None]
